FAERS Safety Report 11285775 (Version 1)
Quarter: 2015Q3

REPORT INFORMATION
  Report Type: Spontaneous
  Country: DE (occurrence: DE)
  Receive Date: 20150721
  Receipt Date: 20150721
  Transmission Date: 20151125
  Serious: Yes (Hospitalization)
  Sender: FDA-Public Use
  Company Number: GXKR2015DE003423

PATIENT

DRUGS (1)
  1. THIAMAZOLE [Suspect]
     Active Substance: METHIMAZOLE
     Indication: BASEDOW^S DISEASE
     Dosage: 5 MG, UNK
     Route: 048
     Dates: start: 2014, end: 20140917

REACTIONS (2)
  - Lividity [Recovering/Resolving]
  - Skin necrosis [Recovering/Resolving]

NARRATIVE: CASE EVENT DATE: 20140501
